FAERS Safety Report 24283580 (Version 4)
Quarter: 2025Q1

REPORT INFORMATION
  Report Type: Spontaneous
  Country: FR (occurrence: FR)
  Receive Date: 20240904
  Receipt Date: 20250102
  Transmission Date: 20250408
  Serious: Yes (Death, Hospitalization, Other)
  Sender: SANDOZ
  Company Number: FR-CHEPLA-2024010573

PATIENT
  Age: 32 Year
  Sex: Male

DRUGS (5)
  1. AZACITIDINE [Suspect]
     Active Substance: AZACITIDINE
     Indication: Polyarteritis nodosa
     Route: 065
  2. AZACITIDINE [Suspect]
     Active Substance: AZACITIDINE
     Indication: Myelodysplastic syndrome
  3. HYDROXYUREA [Suspect]
     Active Substance: HYDROXYUREA
     Indication: Sickle cell disease
     Route: 065
  4. PREDNISONE [Suspect]
     Active Substance: PREDNISONE
     Indication: Myelodysplastic syndrome
     Dosage: 5 MG, QD (GRADUAL REDUCTION)
     Route: 065
  5. PREDNISONE [Suspect]
     Active Substance: PREDNISONE
     Indication: Polyarteritis nodosa
     Route: 065

REACTIONS (13)
  - Disease recurrence [Fatal]
  - Myelodysplastic syndrome [Fatal]
  - Drug ineffective [Fatal]
  - Polyarteritis nodosa [Recovering/Resolving]
  - Retroperitoneal haematoma [Unknown]
  - Sickle cell anaemia with crisis [Unknown]
  - Renal aneurysm [Unknown]
  - Aneurysm ruptured [Unknown]
  - Acute chest syndrome [Unknown]
  - Shock haemorrhagic [Unknown]
  - Graft versus host disease [Unknown]
  - Condition aggravated [Unknown]
  - Product use in unapproved indication [Unknown]
